FAERS Safety Report 17261542 (Version 1)
Quarter: 2020Q1

REPORT INFORMATION
  Report Type: Spontaneous
  Country: DE (occurrence: DE)
  Receive Date: 20200113
  Receipt Date: 20200113
  Transmission Date: 20200409
  Serious: Yes (Other)
  Sender: FDA-Public Use
  Company Number: DE-AMGEN-DEUNI2018181916

PATIENT
  Age: 56 Year
  Sex: Female
  Weight: 56 kg

DRUGS (3)
  1. TRASTUZUMAB. [Suspect]
     Active Substance: TRASTUZUMAB
     Indication: BREAST CANCER
     Dosage: 336 MG, UNK
     Route: 042
     Dates: start: 20180619, end: 20180710
  2. DOCETAXEL. [Suspect]
     Active Substance: DOCETAXEL
     Indication: BREAST CANCER
     Dosage: 152 MG, UNK
     Route: 065
     Dates: start: 20180619
  3. PERTUZUMAB. [Suspect]
     Active Substance: PERTUZUMAB
     Indication: BREAST CANCER
     Dosage: 420 MG, UNK
     Route: 065
     Dates: start: 20180619

REACTIONS (4)
  - Off label use [Unknown]
  - Mastitis [Not Recovered/Not Resolved]
  - Oedema peripheral [Recovered/Resolved]
  - Soft tissue infection [Recovering/Resolving]

NARRATIVE: CASE EVENT DATE: 20180619
